FAERS Safety Report 24138372 (Version 3)
Quarter: 2024Q4

REPORT INFORMATION
  Report Type: Spontaneous
  Country: US (occurrence: US)
  Receive Date: 20240725
  Receipt Date: 20241118
  Transmission Date: 20250115
  Serious: Yes (Hospitalization, Other)
  Sender: IOVANCE BIOTHERAPEUTICS MANUFACTURING LLC
  Company Number: MCN 2024IOV000044

PATIENT

DRUGS (5)
  1. PROLEUKIN [Suspect]
     Active Substance: ALDESLEUKIN
     Indication: Metastatic malignant melanoma
     Dosage: UNK
     Route: 065
  2. LIFILEUCEL [Suspect]
     Active Substance: LIFILEUCEL
     Indication: Metastatic malignant melanoma
     Dosage: UNK
     Route: 042
     Dates: start: 20240617, end: 20240617
  3. LIPITOR [Concomitant]
     Active Substance: ATORVASTATIN CALCIUM
     Indication: Hypercholesterolaemia
     Dosage: 40 MILLIGRAM, QD
     Route: 065
  4. PROSCAR [Concomitant]
     Active Substance: FINASTERIDE
     Indication: Prostatomegaly
     Dosage: 5 MILLIGRAM, QD
     Route: 065
  5. SYNTHROID [Concomitant]
     Active Substance: LEVOTHYROXINE SODIUM
     Indication: Hypothyroidism
     Dosage: 150 MICROGRAM, QD
     Route: 065

REACTIONS (7)
  - Cardiac disorder [Unknown]
  - Ejection fraction decreased [Unknown]
  - Pancytopenia [Unknown]
  - Cardiac failure [Unknown]
  - Orthostatic hypotension [Unknown]
  - Platelet count decreased [Unknown]
  - Haemorrhage [Unknown]

NARRATIVE: CASE EVENT DATE: 20240101
